FAERS Safety Report 6144348-1 (Version None)
Quarter: 2009Q2

REPORT INFORMATION
  Report Type: 
  Country: None (occurrence: None)
  Receive Date: 20090406
  Receipt Date: 20090327
  Transmission Date: 20091009
  Serious: Yes (Life-Threatening, Hospitalization)
  Sender: FDA-Public Use
  Company Number: DK-PFIZER INC-2009189799

PATIENT

DRUGS (3)
  1. IRINOTECAN HCL [Suspect]
     Indication: RECTAL CANCER
     Dosage: FREQUENCY: CYCLIC, EVERY 2 WEEKS;TDD: 315 MG
     Route: 042
     Dates: start: 20090112, end: 20090224
  2. FLUOROURACIL [Suspect]
     Indication: RECTAL CANCER
     Dosage: FREQUENCY: CYCLIC, EVERY 2 WEEKS; TDD: 1700 MG
     Route: 042
     Dates: start: 20090112, end: 20090224
  3. AVASTIN [Suspect]
     Indication: RECTAL CANCER
     Dosage: FREQUENCY: CYCLIC, EVERY 2 WEEKS; UNIT DOSE: 25 MG, TDD: 300 MG
     Route: 042
     Dates: start: 20090112, end: 20090223

REACTIONS (6)
  - AORTIC ANEURYSM [None]
  - AORTIC ANEURYSM RUPTURE [None]
  - DIARRHOEA [None]
  - MUCOUS MEMBRANE DISORDER [None]
  - NAUSEA [None]
  - PROTEINURIA [None]
